FAERS Safety Report 25003690 (Version 1)
Quarter: 2025Q1

REPORT INFORMATION
  Report Type: Spontaneous
  Country: CN (occurrence: CN)
  Receive Date: 20250224
  Receipt Date: 20250224
  Transmission Date: 20250408
  Serious: Yes (Other)
  Sender: AMGEN
  Company Number: CN-AMGEN-CHNSP2025035338

PATIENT

DRUGS (7)
  1. REPATHA [Suspect]
     Active Substance: EVOLOCUMAB
     Indication: Acute coronary syndrome
     Dosage: 140 MILLIGRAM, Q2WK
     Route: 058
  2. ROSUVASTATIN [Concomitant]
     Active Substance: ROSUVASTATIN
     Indication: Acute coronary syndrome
     Dosage: 20 MILLIGRAM, QD (10 MG/TABLET)
     Route: 048
  3. ROSUVASTATIN [Concomitant]
     Active Substance: ROSUVASTATIN
     Route: 048
  4. ASPIRIN [Concomitant]
     Active Substance: ASPIRIN
     Indication: Acute coronary syndrome
     Dosage: 300 MILLIGRAM, QD
     Route: 048
  5. ASPIRIN [Concomitant]
     Active Substance: ASPIRIN
     Dosage: 100 MILLIGRAM, QD
     Route: 048
  6. CLOPIDOGREL [Concomitant]
     Active Substance: CLOPIDOGREL BISULFATE
     Indication: Acute coronary syndrome
     Dosage: 300 MILLIGRAM, QD
     Route: 065
  7. CLOPIDOGREL [Concomitant]
     Active Substance: CLOPIDOGREL BISULFATE
     Dosage: 75 MILLIGRAM, QD
     Route: 065

REACTIONS (1)
  - Angina pectoris [Unknown]
